FAERS Safety Report 7003722-1 (Version None)
Quarter: 2010Q3

REPORT INFORMATION
  Report Type: 
  Country: None (occurrence: None)
  Receive Date: 20100920
  Receipt Date: 20091130
  Transmission Date: 20110219
  Serious: No
  Sender: FDA-Public Use
  Company Number: US-WYE-H12158309

PATIENT
  Sex: Female
  Weight: 62.65 kg

DRUGS (2)
  1. PRISTIQ [Suspect]
     Indication: PREMENSTRUAL SYNDROME
     Route: 048
     Dates: start: 20090601
  2. SUBOXONE [Concomitant]

REACTIONS (1)
  - NIGHT SWEATS [None]
